FAERS Safety Report 5643107-3 (Version None)
Quarter: 2008Q1

REPORT INFORMATION
  Report Type: 
  Country: None (occurrence: None)
  Receive Date: 20080228
  Receipt Date: 20080222
  Transmission Date: 20080703
  Serious: Yes (Death, Life-Threatening, Hospitalization, Other)
  Sender: FDA-Public Use
  Company Number: IN-AVENTIS-200718222GDDC

PATIENT
  Age: 56 Year
  Sex: Female
  Weight: 68 kg

DRUGS (4)
  1. LANTUS [Suspect]
     Route: 058
     Dates: start: 20070813
  2. LISPRO [Suspect]
     Route: 058
     Dates: start: 20070813
  3. METFORMIN HCL [Concomitant]
     Dosage: DOSE: UNK
  4. HUMALOG [Concomitant]
     Dosage: DOSE: UNK

REACTIONS (4)
  - CARDIO-RESPIRATORY ARREST [None]
  - DIABETIC FOOT [None]
  - GANGRENE [None]
  - HYPOGLYCAEMIC UNCONSCIOUSNESS [None]
